FAERS Safety Report 5835160-9 (Version None)
Quarter: 2008Q3

REPORT INFORMATION
  Report Type: 
  Country: None (occurrence: None)
  Receive Date: 20080729
  Receipt Date: 20080204
  Transmission Date: 20090109
  Serious: Yes (Other)
  Sender: FDA-Public Use
  Company Number: MIN-00282

PATIENT
  Age: 17 Year
  Sex: Female

DRUGS (1)
  1. MINOCIN [Suspect]
     Indication: ACNE
     Dates: start: 20050101

REACTIONS (1)
  - SYSTEMIC LUPUS ERYTHEMATOSUS [None]
